FAERS Safety Report 10163692 (Version 1)
Quarter: 2014Q2

REPORT INFORMATION
  Report Type: Spontaneous
  Country: US (occurrence: US)
  Receive Date: 20140509
  Receipt Date: 20140509
  Transmission Date: 20141212
  Serious: Yes (Life-Threatening, Hospitalization)
  Sender: FDA-Public Use
  Company Number: US-PFIZER INC-2014122905

PATIENT
  Age: 64 Year
  Sex: Female

DRUGS (8)
  1. OXYMETAZOLINE [Suspect]
     Indication: NASAL CONGESTION
  2. METFORMIN [Concomitant]
     Dosage: 500 MG, 2X/DAY
  3. NATEGLINIDE [Concomitant]
     Dosage: 60 MG, 2X/DAY
  4. ATORVASTATIN [Concomitant]
     Dosage: 10 MG, DAILY
  5. TRIAMTERENE [Concomitant]
     Dosage: 37.5 MG, DAILY
  6. LOSARTAN [Concomitant]
     Dosage: 50 MG, DAILY
  7. AZITHROMYCIN [Concomitant]
     Indication: NASAL CONGESTION
  8. MOMETASONE [Concomitant]
     Indication: NASAL CONGESTION

REACTIONS (1)
  - Acute myocardial infarction [Recovered/Resolved]
